FAERS Safety Report 5381255-6 (Version None)
Quarter: 2007Q3

REPORT INFORMATION
  Report Type: 
  Country: None (occurrence: None)
  Receive Date: 20070706
  Receipt Date: 20070625
  Transmission Date: 20080115
  Serious: Yes (Hospitalization)
  Sender: FDA-Public Use
  Company Number: JP-PFIZER INC-2007054350

PATIENT
  Age: 57 Year
  Sex: Female

DRUGS (2)
  1. IRINOTECAN HCL [Suspect]
     Indication: LARGE INTESTINE CARCINOMA
     Dosage: DAILY DOSE:120MG
     Route: 042
     Dates: start: 20070525, end: 20070525
  2. TEGAFUR/GIMERACIL/OTERACIL POTASSIUM [Concomitant]
     Indication: LARGE INTESTINE CARCINOMA
     Dosage: DAILY DOSE:120MG

REACTIONS (3)
  - ABDOMINAL PAIN [None]
  - DIARRHOEA [None]
  - STEVENS-JOHNSON SYNDROME [None]
